FAERS Safety Report 10108924 (Version 1)
Quarter: 2014Q2

REPORT INFORMATION
  Report Type: Spontaneous
  Country: US (occurrence: None)
  Receive Date: 20140423
  Receipt Date: 20140423
  Transmission Date: 20141212
  Serious: Yes (Death)
  Sender: FDA-Public Use
  Company Number: SYM-2014-19921

PATIENT
  Age: 58 Year
  Sex: Male

DRUGS (1)
  1. XENAZINE (TETRABENAZINE) (12.5 MILLIGRAM, TABLET) (TETRABENAZINE) [Suspect]
     Indication: PRODUCT USED FOR UNKNOWN INDICATION
     Route: 048
     Dates: start: 20120309, end: 201403

REACTIONS (1)
  - Death [None]
